FAERS Safety Report 14301406 (Version 1)
Quarter: 2017Q4

REPORT INFORMATION
  Report Type: Spontaneous
  Country: US (occurrence: US)
  Receive Date: 20171218
  Receipt Date: 20171218
  Transmission Date: 20180321
  Serious: Yes (Other)
  Sender: FDA-Public Use
  Company Number: None

PATIENT
  Age: 48 Year
  Sex: Female
  Weight: 47.7 kg

DRUGS (7)
  1. BUPOPRION [Suspect]
     Active Substance: BUPROPION
     Indication: DEPRESSION
     Dosage: ?          QUANTITY:1 TABLET(S);?
     Route: 048
     Dates: start: 20171101, end: 20171216
  2. OLIVE OIL [Concomitant]
     Active Substance: OLIVE OIL
  3. PRENATAL VITAMINS [Concomitant]
     Active Substance: VITAMINS
  4. COCONUT OIL [Concomitant]
     Active Substance: COCONUT OIL
  5. VITAMIN C [Concomitant]
     Active Substance: ASCORBIC ACID
  6. NEEM OIL, TEA TREE OIL, LEMON OIL, LAVENDER OIL, THYME OIL, ROSEMARY OIL [Concomitant]
     Active Substance: AZADIRACHTA INDICA SEED OIL\ENGLISH LAVENDER OIL\LEMON OIL\ROSEMARY OIL\TEA TREE OIL\THYME OIL
  7. ROSEMARY [Concomitant]
     Active Substance: ROSEMARY

REACTIONS (2)
  - Rash generalised [None]
  - Alopecia [None]

NARRATIVE: CASE EVENT DATE: 20171101
